FAERS Safety Report 4353442-7 (Version None)
Quarter: 2004Q2

REPORT INFORMATION
  Report Type: 
  Country: None (occurrence: None)
  Receive Date: 20040505
  Receipt Date: 20040505
  Transmission Date: 20050107
  Serious: Yes (Hospitalization)
  Sender: FDA-Public Use
  Company Number: None

PATIENT
  Age: 57 Year
  Sex: Male
  Weight: 80.3 kg

DRUGS (9)
  1. FLEETS PHOSPHOSODA [Suspect]
     Dosage: ORAL
     Route: 048
     Dates: end: 20031219
  2. LISINOPRIL [Suspect]
  3. AMITRIPTYLINE HCL [Concomitant]
  4. GABAPENTIN [Concomitant]
  5. GLIPIZIDE [Concomitant]
  6. SERTRALINE HCL [Concomitant]
  7. HYDRALAZINE HCL [Concomitant]
  8. RABEPRAZOLE SODIUM [Concomitant]
  9. LISINOPRIL [Concomitant]

REACTIONS (1)
  - RENAL FAILURE ACUTE [None]
